FAERS Safety Report 14505862 (Version 2)
Quarter: 2019Q4

REPORT INFORMATION
  Report Type: Spontaneous
  Country: US (occurrence: US)
  Receive Date: 20180208
  Receipt Date: 20191118
  Transmission Date: 20200122
  Serious: Yes (Hospitalization)
  Sender: FDA-Public Use
  Company Number: US-JNJFOC-20180208168

PATIENT
  Age: 41 Year
  Sex: Male

DRUGS (1)
  1. INVOKANA [Suspect]
     Active Substance: CANAGLIFLOZIN
     Indication: DIABETES MELLITUS
     Route: 048
     Dates: start: 201601, end: 201610

REACTIONS (4)
  - Toe amputation [Unknown]
  - Osteomyelitis [Unknown]
  - Abscess limb [Unknown]
  - Cellulitis [Unknown]

NARRATIVE: CASE EVENT DATE: 20170117
